FAERS Safety Report 9121929 (Version 6)
Quarter: 2013Q4

REPORT INFORMATION
  Report Type: Spontaneous
  Country: US (occurrence: US)
  Receive Date: 20130114
  Receipt Date: 20131115
  Transmission Date: 20140711
  Serious: Yes (Other)
  Sender: FDA-Public Use
  Company Number: US-PFIZER INC-2013013229

PATIENT
  Age: 59 Year
  Sex: Female
  Weight: 99.77 kg

DRUGS (27)
  1. SUTENT [Suspect]
     Indication: PANCREATIC CARCINOMA
     Dosage: 12.5MG, 3X/DAY
     Route: 048
     Dates: start: 20121005, end: 20130217
  2. SUTENT [Suspect]
     Dosage: 37.5 MG, CYCLIC (DAILY 6 WEEKS ON AND 1 WEEK OFF)
     Route: 048
     Dates: start: 20130302
  3. OMEGA-3 FATTY ACIDS [Concomitant]
     Dosage: UNK
  4. SANDOSTATIN [Concomitant]
     Dosage: 2 DF(TWO INJECTIONS), MONTHLY
  5. NOVOLOG [Concomitant]
     Indication: DIABETES MELLITUS
     Dosage: 8 IU, 4X/DAY
  6. LANTUS [Concomitant]
     Indication: DIABETES MELLITUS
     Dosage: 80 IU, 1X/DAY (AT NIGHT)
  7. MAXZIDE [Concomitant]
     Indication: HYPERTENSION
     Dosage: UNK, BID
  8. CRESTOR [Concomitant]
     Indication: BLOOD CHOLESTEROL INCREASED
     Dosage: UNK
  9. TOPROL XL [Concomitant]
     Dosage: 50 MG, UNK
  10. PANCRELIPASE [Concomitant]
     Dosage: UNK
  11. OXYCODONE [Concomitant]
     Dosage: UNK P.R.N.
  12. HYDROMORPHONE [Concomitant]
     Dosage: UNK P.R.N.
  13. TRICOR [Concomitant]
     Indication: BLOOD TRIGLYCERIDES INCREASED
     Dosage: UNK
  14. OMEPRAZOLE [Concomitant]
     Dosage: UNK
  15. STRESSTABS [Concomitant]
     Dosage: UNK
  16. GINKGO BILOBA [Concomitant]
     Indication: CONFUSIONAL STATE
     Dosage: UNK
  17. GINKGO BILOBA [Concomitant]
     Indication: MEMORY IMPAIRMENT
  18. VIT D [Concomitant]
     Dosage: 2000 IU, 1X/DAY
  19. CURCUMIN [Concomitant]
     Dosage: UNK
  20. FISHOIL [Concomitant]
     Dosage: UNK
  21. IMODIUM [Concomitant]
     Dosage: UNK
  22. MARIJUANA [Concomitant]
     Indication: PAIN
     Dosage: UNK
  23. MARIJUANA [Concomitant]
     Indication: NAUSEA
  24. MARIJUANA [Concomitant]
     Indication: ANXIETY
  25. MIGRELIEF [Concomitant]
     Indication: MIGRAINE
     Dosage: UNK
  26. TYLENOL PM [Concomitant]
     Dosage: UNK
  27. NORVASC [Concomitant]
     Dosage: UNK

REACTIONS (26)
  - Haemorrhoidal haemorrhage [Not Recovered/Not Resolved]
  - Hypertension [Recovering/Resolving]
  - Palmar-plantar erythrodysaesthesia syndrome [Recovering/Resolving]
  - Rash [Recovering/Resolving]
  - Skin exfoliation [Recovering/Resolving]
  - Fatigue [Recovering/Resolving]
  - Nasopharyngitis [Recovering/Resolving]
  - Diarrhoea [Not Recovered/Not Resolved]
  - Proctalgia [Not Recovered/Not Resolved]
  - Lip haemorrhage [Recovering/Resolving]
  - Bleeding time prolonged [Recovering/Resolving]
  - Flatulence [Recovered/Resolved]
  - Eyelash discolouration [Recovering/Resolving]
  - Hair colour changes [Recovering/Resolving]
  - Oral pain [Recovering/Resolving]
  - Dry skin [Not Recovered/Not Resolved]
  - Insomnia [Recovering/Resolving]
  - Skin discolouration [Recovering/Resolving]
  - Nail discolouration [Recovering/Resolving]
  - Abdominal distension [Recovering/Resolving]
  - Glossodynia [Recovering/Resolving]
  - Tongue discolouration [Recovering/Resolving]
  - Pain in extremity [Unknown]
  - Memory impairment [Unknown]
  - Disease progression [Recovering/Resolving]
  - Pancreatic carcinoma [Recovering/Resolving]
